APPROVED DRUG PRODUCT: ALLOPURINOL
Active Ingredient: ALLOPURINOL
Strength: 100MG
Dosage Form/Route: TABLET;ORAL
Application: A214443 | Product #001 | TE Code: AB
Applicant: HARMAN FINOCHEM LTD
Approved: Mar 7, 2022 | RLD: No | RS: No | Type: RX